FAERS Safety Report 9958940 (Version 1)
Quarter: 2014Q1

REPORT INFORMATION
  Report Type: Report from Study
  Country: US (occurrence: US)
  Receive Date: 20140305
  Receipt Date: 20140305
  Transmission Date: 20141002
  Serious: No
  Sender: FDA-Public Use
  Company Number: US-ABBVIE-13P-163-1102190-00

PATIENT
  Age: 43 Year
  Sex: Female

DRUGS (12)
  1. HUMIRA [Suspect]
     Indication: ANKYLOSING SPONDYLITIS
     Dates: start: 201208
  2. CYMBALTA [Concomitant]
     Indication: FIBROMYALGIA
  3. LUNESTA [Concomitant]
     Indication: INSOMNIA
  4. TOPAMAX [Concomitant]
     Indication: MIGRAINE
  5. AMITIZA [Concomitant]
     Indication: IRRITABLE BOWEL SYNDROME
  6. PROTONIX [Concomitant]
     Indication: IRRITABLE BOWEL SYNDROME
  7. CHLORDIAZEPOXIDE [Concomitant]
     Indication: IRRITABLE BOWEL SYNDROME
  8. CLIDINIUM [Concomitant]
     Indication: IRRITABLE BOWEL SYNDROME
  9. LEVOTHYROXINE [Concomitant]
     Indication: HYPOTHYROIDISM
  10. PREMARIN [Concomitant]
     Indication: HORMONE REPLACEMENT THERAPY
  11. FELDENE [Concomitant]
     Indication: INFLAMMATION
  12. GABAPENTIN [Concomitant]
     Indication: FIBROMYALGIA

REACTIONS (3)
  - Adrenal insufficiency [Not Recovered/Not Resolved]
  - Injection site pain [Not Recovered/Not Resolved]
  - Asthma [Not Recovered/Not Resolved]
